FAERS Safety Report 6456544-4 (Version None)
Quarter: 2009Q4

REPORT INFORMATION
  Report Type: 
  Country: None (occurrence: None)
  Receive Date: 20091124
  Receipt Date: 20091124
  Transmission Date: 20100525
  Serious: No
  Sender: FDA-Public Use
  Company Number: None

PATIENT
  Age: 57 Year
  Sex: Male
  Weight: 78.7 kg

DRUGS (1)
  1. INFLIXIMAB [Suspect]
     Indication: CROHN'S DISEASE
     Dosage: 400 MG ONCE IV
     Route: 042
     Dates: start: 20091002, end: 20091002

REACTIONS (7)
  - ANGIOEDEMA [None]
  - HEADACHE [None]
  - HYPOTENSION [None]
  - PHOTOSENSITIVITY REACTION [None]
  - RASH [None]
  - TACHYCARDIA [None]
  - WHEEZING [None]
